FAERS Safety Report 8222077-8 (Version None)
Quarter: 2012Q1

REPORT INFORMATION
  Report Type: 
  Country: None (occurrence: None)
  Receive Date: 20120320
  Receipt Date: 20120312
  Transmission Date: 20120608
  Serious: Yes (Hospitalization)
  Sender: FDA-Public Use
  Company Number: US-GLAXOSMITHKLINE-A0970183A

PATIENT
  Age: 79 Year
  Sex: Male

DRUGS (10)
  1. LENALIDOMIDE [Suspect]
     Indication: NON-HODGKIN'S LYMPHOMA
     Route: 048
  2. MUCINEX [Concomitant]
     Dosage: 600MG TWICE PER DAY
     Route: 048
  3. MULTI-VITAMIN [Concomitant]
  4. SAW PALMETTO [Concomitant]
     Dosage: 160MG PER DAY
     Route: 048
  5. OFATUMUMAB [Suspect]
     Indication: NON-HODGKIN'S LYMPHOMA
     Route: 042
     Dates: end: 20111101
  6. ASPIRIN [Concomitant]
     Dosage: 81MG PER DAY
     Route: 048
  7. PRILOSEC [Concomitant]
     Dosage: 20MG PER DAY
     Route: 048
  8. LASIX [Concomitant]
     Dosage: 20MG PER DAY
  9. FINASTERIDE [Concomitant]
     Dosage: 5MG PER DAY
     Route: 048
  10. LIPITOR [Concomitant]
     Dosage: 20MG PER DAY
     Route: 048

REACTIONS (2)
  - FEBRILE NEUTROPENIA [None]
  - PYREXIA [None]
